FAERS Safety Report 4377944-2 (Version None)
Quarter: 2004Q2

REPORT INFORMATION
  Report Type: 
  Country: None (occurrence: None)
  Receive Date: 20040615
  Receipt Date: 20040615
  Transmission Date: 20050107
  Serious: Yes (Other)
  Sender: FDA-Public Use
  Company Number: None

PATIENT
  Age: 72 Year
  Sex: Male

DRUGS (1)
  1. TOPROL-XL [Suspect]
     Dates: start: 20040225, end: 20040309

REACTIONS (3)
  - BLISTER [None]
  - PRURITUS [None]
  - RASH [None]
